FAERS Safety Report 4522775-3 (Version None)
Quarter: 2004Q4

REPORT INFORMATION
  Report Type: 
  Country: None (occurrence: None)
  Receive Date: 20041207
  Receipt Date: 20040329
  Transmission Date: 20050328
  Serious: Yes (Hospitalization)
  Sender: FDA-Public Use
  Company Number: F01200400682

PATIENT
  Age: 64 Year
  Sex: Female

DRUGS (6)
  1. OXALIPLATIN [Suspect]
     Indication: PANCREATIC CARCINOMA
     Dosage: 10 MG/M2 ON DAY 2, Q2W INTRAVENOUS NOS
     Route: 042
     Dates: start: 20031015, end: 20031015
  2. GEMZAR - (GEMCITABINE HYDROCHLORIDE)- 1000 MG/M2 / SOLUTION - 10 MG/M2 [Suspect]
     Dosage: 1000 MG/M2 ON DAY 1, Q2W / 100 MG/M2 1/WEEK / 100 MG/M2 1/WEEK INTRAVENOUS NOS
     Route: 042
     Dates: start: 20031113, end: 20031113
  3. GEMZAR - (GEMCITABINE HYDROCHLORIDE)- 1000 MG/M2 / SOLUTION - 10 MG/M2 [Suspect]
     Dosage: 1000 MG/M2 ON DAY 1, Q2W / 100 MG/M2 1/WEEK / 100 MG/M2 1/WEEK INTRAVENOUS NOS
     Route: 042
     Dates: start: 20040226, end: 20040226
  4. GEMZAR - (GEMCITABINE HYDROCHLORIDE)- 1000 MG/M2 / SOLUTION - 10 MG/M2 [Suspect]
     Dosage: 1000 MG/M2 ON DAY 1, Q2W / 100 MG/M2 1/WEEK / 100 MG/M2 1/WEEK INTRAVENOUS NOS
     Route: 042
     Dates: start: 20040304, end: 20040304
  5. RADIATION THERAPY [Concomitant]
  6. LEXOMIL (BROMAZEPAM) [Concomitant]

REACTIONS (23)
  - ANAEMIA [None]
  - ASTHENIA [None]
  - BACK PAIN [None]
  - CHILLS [None]
  - COLITIS ISCHAEMIC [None]
  - COLITIS ULCERATIVE [None]
  - COLONIC HAEMORRHAGE [None]
  - DRUG INTOLERANCE [None]
  - FALL [None]
  - FEBRILE NEUTROPENIA [None]
  - GASTROENTERITIS RADIATION [None]
  - GENERAL PHYSICAL HEALTH DETERIORATION [None]
  - HALLUCINATION [None]
  - HYPERSENSITIVITY [None]
  - MALIGNANT NEOPLASM PROGRESSION [None]
  - METASTASES TO LUNG [None]
  - NEUROPATHY [None]
  - PERICARDIAL EFFUSION [None]
  - RADIATION INJURY [None]
  - RADIATION OESOPHAGITIS [None]
  - RECTAL HAEMORRHAGE [None]
  - SCAN ABNORMAL [None]
  - SOMNOLENCE [None]
